FAERS Safety Report 8585375-4 (Version None)
Quarter: 2012Q3

REPORT INFORMATION
  Report Type: 
  Country: None (occurrence: None)
  Receive Date: 20120810
  Receipt Date: 20120802
  Transmission Date: 20120928
  Serious: Yes (Hospitalization)
  Sender: FDA-Public Use
  Company Number: IN-SANOFI-AVENTIS-2012SA055585

PATIENT
  Age: 50 Year
  Sex: Male

DRUGS (1)
  1. ENOXAPARIN SODIUM [Suspect]
     Route: 042

REACTIONS (2)
  - THROMBOSIS IN DEVICE [None]
  - DRUG INEFFECTIVE [None]
